FAERS Safety Report 10657495 (Version 1)
Quarter: 2014Q4

REPORT INFORMATION
  Report Type: Spontaneous
  Country: CA (occurrence: None)
  Receive Date: 20141215
  Receipt Date: 20141215
  Transmission Date: 20150529
  Serious: Yes (Disabling)
  Sender: FDA-Public Use
  Company Number: A1089289A

PATIENT
  Age: 20 Year
  Sex: Male

DRUGS (4)
  1. PAROXETINE HYDROCHLORIDE (UNKNOWN) [Suspect]
     Active Substance: PAROXETINE HYDROCHLORIDE
     Indication: ILL-DEFINED DISORDER
  2. PAROXETINE HYDROCHLORIDE (UNKNOWN) [Suspect]
     Active Substance: PAROXETINE HYDROCHLORIDE
     Indication: ILL-DEFINED DISORDER
  3. MAGNESIUM SALT, UNKNOWN [Concomitant]
  4. LAMOTRIGINE, UNKNOWN [Concomitant]

REACTIONS (11)
  - Drug withdrawal syndrome [None]
  - Emotional poverty [None]
  - Feeling abnormal [None]
  - Palpitations [None]
  - Insomnia [None]
  - Paranoia [None]
  - Dizziness [None]
  - Apathy [None]
  - Hypoaesthesia [None]
  - Blood pressure increased [None]
  - Paraesthesia [None]
